FAERS Safety Report 8067090-9 (Version None)
Quarter: 2012Q1

REPORT INFORMATION
  Report Type: 
  Country: None (occurrence: None)
  Receive Date: 20120124
  Receipt Date: 20120120
  Transmission Date: 20120608
  Serious: Yes (Hospitalization, Other)
  Sender: FDA-Public Use
  Company Number: DE-PFIZER INC-2012017686

PATIENT
  Age: 72 Year
  Sex: Male
  Weight: 60 kg

DRUGS (2)
  1. ROCEPHIN [Suspect]
     Dosage: 1000 MG, 1X/DAY
     Route: 042
     Dates: start: 20111107, end: 20111115
  2. CLINDAMYCIN HCL [Suspect]
     Dosage: 1-4X300MG DAILY
     Route: 042
     Dates: start: 20111107, end: 20111115

REACTIONS (1)
  - HEPATITIS ACUTE [None]
